FAERS Safety Report 16598354 (Version 2)
Quarter: 2019Q4

REPORT INFORMATION
  Report Type: Spontaneous
  Country: US (occurrence: US)
  Receive Date: 20190719
  Receipt Date: 20191024
  Transmission Date: 20200122
  Serious: No
  Sender: FDA-Public Use
  Company Number: US-009507513-1906USA009090

PATIENT
  Sex: Female

DRUGS (2)
  1. CELESTONE SOLUSPAN [Suspect]
     Active Substance: BETAMETHASONE ACETATE\BETAMETHASONE SODIUM PHOSPHATE
     Indication: PIRIFORMIS SYNDROME
     Dosage: 1.5 ML 9 MG (STRENGTH 6MG/ML)
  2. SODIUM CHLORIDE. [Concomitant]
     Active Substance: SODIUM CHLORIDE
     Dosage: 5-10 ML

REACTIONS (1)
  - Off label use [Unknown]
